FAERS Safety Report 4732272-8 (Version None)
Quarter: 2005Q3

REPORT INFORMATION
  Report Type: 
  Country: None (occurrence: None)
  Receive Date: 20050726
  Receipt Date: 20040415
  Transmission Date: 20060218
  Serious: Yes (Hospitalization)
  Sender: FDA-Public Use
  Company Number: 04FRA0103

PATIENT
  Sex: Male

DRUGS (9)
  1. AGGRASTAT [Suspect]
     Indication: THROMBOCYTOPENIA
     Dosage: (30 MIN)
     Dates: start: 20040103, end: 20040103
  2. AGGRASTAT [Suspect]
     Dosage: INTRAVENOUS
     Route: 042
     Dates: start: 20040103, end: 20040103
  3. ASPIRIN [Concomitant]
  4. ATORVASTATIN CALCIUM [Concomitant]
  5. BROMAZEPAM [Concomitant]
  6. DILTIAZEM HYDROCHLORIDE [Concomitant]
  7. HEPARIN [Concomitant]
  8. NITROGLYCERIN [Concomitant]
  9. OMEPRAZOLE [Concomitant]

REACTIONS (2)
  - THROMBOCYTOPENIA [None]
  - TREMOR [None]
